FAERS Safety Report 4383808-0 (Version None)
Quarter: 2004Q2

REPORT INFORMATION
  Report Type: 
  Country: None (occurrence: None)
  Receive Date: 20040608
  Receipt Date: 20031016
  Transmission Date: 20050107
  Serious: Yes (Other)
  Sender: FDA-Public Use
  Company Number: 200313797BCC

PATIENT
  Age: 79 Year
  Sex: Female
  Weight: 73.0291 kg

DRUGS (7)
  1. ALEVE [Suspect]
     Indication: ARTHRITIS
     Dosage: 440 MG, QD, ORAL
     Route: 048
     Dates: start: 20031011, end: 20031015
  2. LIPITOR [Concomitant]
  3. ADALAT [Concomitant]
  4. QUININE SULFATE [Concomitant]
  5. ASPIRIN [Concomitant]
  6. MULTIVITAMIN [Concomitant]
  7. VITAMIN E [Concomitant]

REACTIONS (1)
  - HAEMATOCHEZIA [None]
